FAERS Safety Report 6394141-X (Version None)
Quarter: 2009Q4

REPORT INFORMATION
  Report Type: 
  Country: None (occurrence: None)
  Receive Date: 20091008
  Receipt Date: 20090928
  Transmission Date: 20100525
  Serious: Yes (Other)
  Sender: FDA-Public Use
  Company Number: BE-PFIZER INC-2009274630

PATIENT
  Age: 56 Year

DRUGS (7)
  1. MEDROL [Suspect]
  2. CETUXIMAB [Suspect]
     Indication: HEAD AND NECK CANCER
  3. DOCETAXEL [Suspect]
     Indication: HEAD AND NECK CANCER
  4. FLUOROURACIL [Suspect]
     Indication: HEAD AND NECK CANCER
  5. CISPLATIN [Suspect]
     Indication: HEAD AND NECK CANCER
  6. OMEPRAZOLE [Concomitant]
  7. NULYTELY [Concomitant]

REACTIONS (1)
  - BRONCHOPULMONARY ASPERGILLOSIS [None]
